FAERS Safety Report 7641302-5 (Version None)
Quarter: 2011Q3

REPORT INFORMATION
  Report Type: 
  Country: None (occurrence: None)
  Receive Date: 20110728
  Receipt Date: 20110714
  Transmission Date: 20111222
  Serious: Yes (Hospitalization)
  Sender: FDA-Public Use
  Company Number: US-JNJFOC-20110706818

PATIENT
  Age: 2 Year
  Sex: Female
  Weight: 11.4 kg

DRUGS (1)
  1. VISINE EYE DROPS [Suspect]
     Indication: ACCIDENTAL EXPOSURE
     Route: 048

REACTIONS (6)
  - WRONG DRUG ADMINISTERED [None]
  - LETHARGY [None]
  - BRADYCARDIA [None]
  - ACCIDENTAL OVERDOSE [None]
  - DYSPNOEA [None]
  - ACCIDENTAL EXPOSURE [None]
